FAERS Safety Report 9154160 (Version 1)
Quarter: 2013Q1

REPORT INFORMATION
  Report Type: Other
  Country: JP (occurrence: JP)
  Receive Date: 20130311
  Receipt Date: 20130311
  Transmission Date: 20140127
  Serious: Yes (Other)
  Sender: FDA-Public Use
  Company Number: JP-BRISTOL-MYERS SQUIBB COMPANY-17461708

PATIENT
  Age: 56 Year
  Sex: Female

DRUGS (1)
  1. AMPICILLIN [Suspect]
     Dosage: NO OF DOSES-2

REACTIONS (1)
  - Toxic epidermal necrolysis [Unknown]
